FAERS Safety Report 7520532-7 (Version None)
Quarter: 2011Q2

REPORT INFORMATION
  Report Type: 
  Country: None (occurrence: None)
  Receive Date: 20110602
  Receipt Date: 20110519
  Transmission Date: 20111010
  Serious: Yes (Hospitalization, Other)
  Sender: FDA-Public Use
  Company Number: CA-ELI_LILLY_AND_COMPANY-CA201105005606

PATIENT
  Sex: Male

DRUGS (9)
  1. PERINDOPRIL ERBUMINE [Concomitant]
  2. ROSUVASTATIN [Concomitant]
  3. ZYPREXA [Suspect]
     Dosage: 30 MG, EACH EVENING
  4. DIVALPROEX SODIUM [Concomitant]
  5. ZYPREXA [Suspect]
     Indication: SCHIZOAFFECTIVE DISORDER
     Dosage: UNK
  6. VENLAFAXINE [Concomitant]
  7. NIFEDIPINE [Concomitant]
  8. LEVOTHYROXINE SODIUM [Concomitant]
  9. ZYPREXA [Suspect]
     Dosage: 20 MG, EACH EVENING

REACTIONS (5)
  - PANCREATITIS [None]
  - DIABETES MELLITUS [None]
  - UROGENITAL HAEMORRHAGE [None]
  - RECTAL HAEMORRHAGE [None]
  - OVERDOSE [None]
